FAERS Safety Report 5993737-4 (Version None)
Quarter: 2008Q4

REPORT INFORMATION
  Report Type: 
  Country: None (occurrence: None)
  Receive Date: 20081212
  Receipt Date: 20081202
  Transmission Date: 20090506
  Serious: Yes (Hospitalization)
  Sender: FDA-Public Use
  Company Number: BE-ELI_LILLY_AND_COMPANY-BE200812000876

PATIENT
  Sex: Female

DRUGS (2)
  1. FORTEO [Suspect]
     Indication: OSTEOPOROSIS
     Dosage: 20 UG, DAILY (1/D)
     Route: 058
     Dates: start: 20080516, end: 20081102
  2. FORTEO [Suspect]
     Dosage: UNK, UNKNOWN
     Route: 065
     Dates: start: 20081110

REACTIONS (2)
  - FALL [None]
  - SPINAL FRACTURE [None]
